FAERS Safety Report 17307758 (Version 1)
Quarter: 2020Q1

REPORT INFORMATION
  Report Type: Spontaneous
  Country: CH (occurrence: CH)
  Receive Date: 20200123
  Receipt Date: 20200123
  Transmission Date: 20200409
  Serious: Yes (Other)
  Sender: FDA-Public Use
  Company Number: CH-UCBSA-2020002366

PATIENT
  Age: 0 Year
  Sex: Male

DRUGS (2)
  1. CIMZIA [Suspect]
     Active Substance: CERTOLIZUMAB PEGOL
     Indication: ANKYLOSING SPONDYLITIS
     Dosage: 200 MILLIGRAM, EV 2 WEEKS(QOW)
     Route: 064
     Dates: start: 20190816, end: 20191114
  2. CIMZIA [Suspect]
     Active Substance: CERTOLIZUMAB PEGOL
     Dosage: 200 MILLIGRAM, EV 2 WEEKS(QOW)
     Route: 063
     Dates: start: 20191114

REACTIONS (3)
  - Maternal exposure during pregnancy [Unknown]
  - Exposure via breast milk [Unknown]
  - Foetal growth restriction [Recovered/Resolved]

NARRATIVE: CASE EVENT DATE: 20190816
